FAERS Safety Report 18895009 (Version 1)
Quarter: 2021Q1

REPORT INFORMATION
  Report Type: Spontaneous
  Country: FR (occurrence: FR)
  Receive Date: 20210216
  Receipt Date: 20210216
  Transmission Date: 20210420
  Serious: Yes (Hospitalization)
  Sender: FDA-Public Use
  Company Number: FR-AUROBINDO-AUR-APL-2021-005606

PATIENT
  Age: 79 Year
  Sex: Female
  Weight: 80.2 kg

DRUGS (6)
  1. IRBESARTAN. [Suspect]
     Active Substance: IRBESARTAN
     Indication: HYPERTENSION
     Dosage: 300 MILLIGRAM, ONCE A DAY
     Route: 048
  2. KARDEGIC [Suspect]
     Active Substance: ASPIRIN DL-LYSINE
     Indication: ARTERIOSCLEROSIS MOENCKEBERG-TYPE
     Dosage: 1 DOSAGE FORM, ONCE A DAY
     Route: 048
  3. SIFROL [Suspect]
     Active Substance: PRAMIPEXOLE
     Indication: RESTLESS LEGS SYNDROME
     Dosage: 1 DOSAGE FORM, ONCE A DAY
     Route: 048
     Dates: end: 20200628
  4. SINGULAIR [Suspect]
     Active Substance: MONTELUKAST SODIUM
     Indication: OBSTRUCTIVE AIRWAYS DISORDER
     Dosage: 1 DOSAGE FORM, ONCE A DAY
     Route: 048
  5. AERIUS (EBASTINE) [Suspect]
     Active Substance: EBASTINE
     Indication: RHINITIS ALLERGIC
     Dosage: 1 DOSAGE FORM, ONCE A DAY
     Route: 048
  6. LIBRAX [Suspect]
     Active Substance: CHLORDIAZEPOXIDE HYDROCHLORIDE\CLIDINIUM BROMIDE
     Indication: ANXIETY
     Dosage: 1 DOSAGE FORM, ONCE A DAY
     Route: 048

REACTIONS (2)
  - Balance disorder [Not Recovered/Not Resolved]
  - Gait disturbance [Not Recovered/Not Resolved]

NARRATIVE: CASE EVENT DATE: 202005
